FAERS Safety Report 6336899-1 (Version None)
Quarter: 2009Q3

REPORT INFORMATION
  Report Type: 
  Country: None (occurrence: None)
  Receive Date: 20090901
  Receipt Date: 20090824
  Transmission Date: 20100115
  Serious: Yes (Hospitalization, Other)
  Sender: FDA-Public Use
  Company Number: PHHY2009NO34582

PATIENT
  Sex: Female

DRUGS (7)
  1. EXELON [Suspect]
     Indication: DEMENTIA
     Dosage: 4.6 MG/DAY
     Route: 062
     Dates: start: 20090512, end: 20090605
  2. APROVEL [Concomitant]
     Dosage: 300 MG, UNK
  3. CIPRALEX [Concomitant]
     Dosage: 10 MG, UNK
  4. LASIX [Concomitant]
     Dosage: 30 MG, UNK
  5. LEVOTHYROXINE SODIUM [Concomitant]
     Dosage: 50 MCG 5 DAYS/WEEK
  6. LEVOTHYROXINE SODIUM [Concomitant]
     Dosage: 100 MCG 2 DAYS
  7. DUPHALAC [Concomitant]
     Dosage: 15 ML X 2

REACTIONS (3)
  - BRADYCARDIA [None]
  - NAUSEA [None]
  - SYNCOPE [None]
